FAERS Safety Report 8841639 (Version 1)
Quarter: 2012Q4

REPORT INFORMATION
  Report Type: 
  Country: US (occurrence: US)
  Receive Date: 20121015
  Receipt Date: 20121015
  Transmission Date: 20130627
  Serious: Yes (Other)
  Sender: FDA-Public Use
  Company Number: US-PFIZER INC-2012221209

PATIENT
  Age: 53 Year
  Sex: Male

DRUGS (3)
  1. ZOLOFT [Suspect]
     Dosage: 50 mg 1 tablet nightly
     Route: 048
  2. VIAGRA [Suspect]
     Indication: ERECTILE DYSFUNCTION
     Dosage: 100 mg 1 tablet as needed
     Route: 048
  3. SPIRIVA [Suspect]
     Dosage: 18 ug, UNK

REACTIONS (12)
  - Bipolar I disorder [Unknown]
  - Hip arthroplasty [Unknown]
  - Depression [Unknown]
  - Essential hypertension [Unknown]
  - Chronic obstructive pulmonary disease [Unknown]
  - Gastrooesophageal reflux disease [Unknown]
  - Arthralgia [Unknown]
  - Tobacco user [Unknown]
  - Hypothyroidism [Unknown]
  - Insomnia [Unknown]
  - Attention deficit/hyperactivity disorder [Unknown]
  - Erectile dysfunction [Unknown]
